FAERS Safety Report 19489388 (Version 1)
Quarter: 2021Q3

REPORT INFORMATION
  Report Type: Spontaneous
  Country: US (occurrence: US)
  Receive Date: 20210703
  Receipt Date: 20210703
  Transmission Date: 20211014
  Serious: Yes (Death, Hospitalization, Other)
  Sender: FDA-Public Use
  Company Number: US-TEVA-2021-US-1927576

PATIENT
  Age: 73 Year
  Sex: Female

DRUGS (3)
  1. AMBRISENTAN [Suspect]
     Active Substance: AMBRISENTAN
     Indication: PULMONARY ARTERIAL HYPERTENSION
     Dosage: 5 MILLIGRAM DAILY;
     Route: 065
  2. DILTIAZEM. [Concomitant]
     Active Substance: DILTIAZEM
  3. ALYQ [Suspect]
     Active Substance: TADALAFIL
     Indication: PRODUCT USED FOR UNKNOWN INDICATION
     Route: 065

REACTIONS (5)
  - Fluid retention [Unknown]
  - Lung disorder [Unknown]
  - Cardiac failure congestive [Fatal]
  - Product dose omission issue [Unknown]
  - Cardiac disorder [Unknown]
